FAERS Safety Report 25050330 (Version 2)
Quarter: 2025Q1

REPORT INFORMATION
  Report Type: Spontaneous
  Country: US (occurrence: US)
  Receive Date: 20250307
  Receipt Date: 20250314
  Transmission Date: 20250408
  Serious: Yes (Life-Threatening, Hospitalization)
  Sender: BAYER HEALTHCARE LLC
  Company Number: US-MLMSERVICE-20250227-PI387003-00033-1

PATIENT
  Age: 69 Year
  Sex: Male

DRUGS (15)
  1. ASPIRIN [Interacting]
     Active Substance: ASPIRIN
     Indication: Coronary artery disease
  2. ASPIRIN [Interacting]
     Active Substance: ASPIRIN
     Indication: Atrial fibrillation
  3. ASPIRIN [Interacting]
     Active Substance: ASPIRIN
     Indication: Cardiac failure congestive
  4. ASPIRIN [Interacting]
     Active Substance: ASPIRIN
     Indication: Chronic obstructive pulmonary disease
  5. CLOPIDOGREL [Interacting]
     Active Substance: CLOPIDOGREL BISULFATE
  6. XARELTO [Interacting]
     Active Substance: RIVAROXABAN
     Indication: Coronary artery disease
  7. XARELTO [Interacting]
     Active Substance: RIVAROXABAN
     Indication: Atrial fibrillation
  8. XARELTO [Interacting]
     Active Substance: RIVAROXABAN
     Indication: Chronic obstructive pulmonary disease
  9. XARELTO [Interacting]
     Active Substance: RIVAROXABAN
     Indication: Cardiac failure congestive
  10. AMIODARONE [Concomitant]
     Active Substance: AMIODARONE
  11. ALBUTEROL [Concomitant]
     Active Substance: ALBUTEROL
     Route: 045
  12. FUROSEMIDE [Concomitant]
     Active Substance: FUROSEMIDE
  13. LOSARTAN [Concomitant]
     Active Substance: LOSARTAN
  14. ROFLUMILAST [Concomitant]
     Active Substance: ROFLUMILAST
  15. OXYGEN [Concomitant]
     Active Substance: OXYGEN
     Indication: Chronic respiratory failure
     Route: 045

REACTIONS (3)
  - Pulmonary haemorrhage [Recovered/Resolved]
  - Pleural effusion [Recovered/Resolved]
  - Contraindicated product administered [None]
